FAERS Safety Report 5859121-9 (Version None)
Quarter: 2008Q3

REPORT INFORMATION
  Report Type: 
  Country: None (occurrence: None)
  Receive Date: 20080827
  Receipt Date: 20080820
  Transmission Date: 20090109
  Serious: Yes (Hospitalization, Other)
  Sender: FDA-Public Use
  Company Number: PHHY2008JP03416

PATIENT
  Age: 62 Year
  Sex: Female

DRUGS (2)
  1. FLUVASTATIN [Suspect]
     Indication: HYPERCHOLESTEROLAEMIA
     Route: 048
     Dates: start: 20080104, end: 20080305
  2. ALLEGRA [Concomitant]
     Route: 048

REACTIONS (2)
  - GYNAECOLOGICAL EXAMINATION ABNORMAL [None]
  - HEPATIC FUNCTION ABNORMAL [None]
